FAERS Safety Report 17934589 (Version 1)
Quarter: 2020Q2

REPORT INFORMATION
  Report Type: Spontaneous
  Country: US (occurrence: US)
  Receive Date: 20200623
  Receipt Date: 20200623
  Transmission Date: 20200714
  Serious: Yes (Death, Hospitalization)
  Sender: FDA-Public Use
  Company Number: None

PATIENT
  Sex: Female
  Weight: 56.4 kg

DRUGS (1)
  1. DOXIL [Suspect]
     Active Substance: DOXORUBICIN HYDROCHLORIDE
     Dates: end: 20200423

REACTIONS (10)
  - Contrast media allergy [None]
  - Blood pH decreased [None]
  - Disease progression [None]
  - Dyspnoea [None]
  - Loss of personal independence in daily activities [None]
  - Cardiac arrest [None]
  - Unresponsive to stimuli [None]
  - Anxiety [None]
  - Asthenia [None]
  - Tachycardia [None]

NARRATIVE: CASE EVENT DATE: 20200616
